FAERS Safety Report 4931248-5 (Version None)
Quarter: 2006Q1

REPORT INFORMATION
  Report Type: 
  Country: None (occurrence: None)
  Receive Date: 20060302
  Receipt Date: 20060301
  Transmission Date: 20060701
  Serious: Yes (Other)
  Sender: FDA-Public Use
  Company Number: US-MERCK-0603USA00282

PATIENT
  Age: 79 Year
  Sex: Female

DRUGS (4)
  1. FOSAMAX [Suspect]
     Indication: OSTEOPENIA
     Route: 048
  2. MOBIC [Concomitant]
     Route: 065
  3. TRAMADOL HYDROCHLORIDE [Concomitant]
     Route: 065
  4. GLUCOSAMINE [Concomitant]
     Route: 065

REACTIONS (2)
  - BREAST CANCER [None]
  - OSTEONECROSIS [None]
